FAERS Safety Report 8439250 (Version 2)
Quarter: 2013Q4

REPORT INFORMATION
  Report Type: Spontaneous
  Country: US (occurrence: None)
  Receive Date: 20120126
  Receipt Date: 20131226
  Transmission Date: 20140711
  Serious: Yes (Other)
  Sender: FDA-Public Use
  Company Number: PHEH2011US04893

PATIENT
  Age: 29 Year
  Sex: Male

DRUGS (7)
  1. AFINITOR [Suspect]
     Indication: ASTROCYTOMA
     Dosage: 7.5 MG DAILY, ORAL : ORAL
     Route: 048
     Dates: start: 20100201, end: 20130127
  2. METFORMIN HYDROCHLORIDE [Concomitant]
  3. TOPAMAX [Concomitant]
  4. SEROQUEL [Concomitant]
  5. LEVOTHYROXINE SODIUM [Concomitant]
  6. ZONISAMIDE [Concomitant]
  7. CALCIUM W/VITAMIN D NOS (CALCIUM, VITAMIN D NOS) [Concomitant]

REACTIONS (6)
  - Malaise [None]
  - Blood triglycerides increased [None]
  - Dyspnoea [None]
  - Body temperature increased [None]
  - Convulsion [None]
  - Blood creatinine increased [None]
